FAERS Safety Report 10721795 (Version 2)
Quarter: 2015Q2

REPORT INFORMATION
  Report Type: Spontaneous
  Country: FR (occurrence: FR)
  Receive Date: 20150120
  Receipt Date: 20150512
  Transmission Date: 20150821
  Serious: Yes (Hospitalization, Other)
  Sender: FDA-Public Use
  Company Number: FR-AMGEN-FRASP2015004312

PATIENT
  Age: 66 Year
  Sex: Female

DRUGS (3)
  1. SPECIAFOLDINE [Concomitant]
     Active Substance: FOLIC ACID
     Dosage: 5 MG, WEEKLY
     Route: 048
  2. ENBREL [Suspect]
     Active Substance: ETANERCEPT
     Indication: PRODUCT USED FOR UNKNOWN INDICATION
     Dosage: 50 MG, WEEKLY
     Route: 058
     Dates: end: 20140402
  3. NOVATREX (METHOTREXATE) [Concomitant]
     Active Substance: METHOTREXATE SODIUM
     Dosage: 15 MG, WEEKLY
     Route: 048

REACTIONS (3)
  - Breast cancer [Recovered/Resolved with Sequelae]
  - Brain compression [Unknown]
  - Metastases to spine [Recovered/Resolved with Sequelae]

NARRATIVE: CASE EVENT DATE: 201401
